FAERS Safety Report 18128929 (Version 4)
Quarter: 2021Q4

REPORT INFORMATION
  Report Type: Spontaneous
  Country: US (occurrence: US)
  Receive Date: 20200810
  Receipt Date: 20211103
  Transmission Date: 20220304
  Serious: No
  Sender: FDA-Public Use
  Company Number: US-PFIZER INC-2019033607

PATIENT
  Age: 71 Year
  Sex: Female

DRUGS (3)
  1. PREMARIN [Suspect]
     Active Substance: ESTROGENS, CONJUGATED
     Dosage: SINGLE TABLET DOSE
  2. PREMARIN [Suspect]
     Active Substance: ESTROGENS, CONJUGATED
     Dosage: 0.3 MG, 4X/DAY
  3. PREMARIN [Suspect]
     Active Substance: ESTROGENS, CONJUGATED
     Dosage: 0.3 MG, 3X/DAY

REACTIONS (7)
  - Rash [Unknown]
  - Headache [Unknown]
  - Stress [Unknown]
  - Back pain [Unknown]
  - Memory impairment [Unknown]
  - Anxiety [Unknown]
  - Mental disorder [Unknown]
